FAERS Safety Report 9904832 (Version 1)
Quarter: 2013Q2

REPORT INFORMATION
  Report Type: Spontaneous
  Country: US (occurrence: None)
  Receive Date: 20130305
  Receipt Date: 20130305
  Transmission Date: 20140414
  Serious: Yes (Hospitalization)
  Sender: FDA-Public Use
  Company Number: 163-21880-12030740

PATIENT
  Age: 83 Year
  Sex: Male

DRUGS (6)
  1. REVLIMID [Suspect]
     Indication: PLASMA CELL MYELOMA
     Dosage: 10 MG, 1 IN 1 D,  PO
     Route: 048
     Dates: start: 201101
  2. AMLODIPINE BESYLATE (AMLODIPINE BESILATE) (UNKNOWN) [Concomitant]
  3. PROCHLORPERAZINE MALEATE (PROCHLORPERAZINE MALEATE) (UNKNOWN)? [Concomitant]
  4. CIPROFLOXACIN HCL (CIPROFLOXACIN HYDROCHLORIDE) (UNKNOWN)? [Concomitant]
  5. DEXAMETHASONE (DEXAMETHASONE) (UNKNOWN) [Concomitant]
  6. METOPROLOL TARTRATE (METOPROLOL TARTRATE) (UNKNOWN) [Concomitant]

REACTIONS (2)
  - Influenza [None]
  - Pneumonia [None]
